FAERS Safety Report 5090888-6 (Version None)
Quarter: 2006Q3

REPORT INFORMATION
  Report Type: 
  Country: None (occurrence: None)
  Receive Date: 20060823
  Receipt Date: 20060817
  Transmission Date: 20061208
  Serious: No
  Sender: FDA-Public Use
  Company Number: 2006-146828-NL

PATIENT
  Age: 86 Year
  Sex: Female

DRUGS (11)
  1. MIRTAZAPINE [Suspect]
     Indication: DEPRESSION
     Dosage: 30 MG ORAL
     Route: 048
     Dates: end: 20060627
  2. CARBAZOCHROME [Concomitant]
  3. BECLOMETHASONE DIPROPIONATE [Concomitant]
  4. BETAHISTINE [Concomitant]
  5. CO-BENELDOPA [Concomitant]
  6. IRON [Concomitant]
  7. RISEDRONATE [Concomitant]
  8. ALBUTEROL SPIROS [Concomitant]
  9. TEMAZEPAM [Concomitant]
  10. THYROXINE SODIUM [Concomitant]
  11. URSODEOXYCHOLIC ACID [Concomitant]

REACTIONS (2)
  - PANCYTOPENIA [None]
  - RESPIRATORY TRACT INFECTION [None]
